FAERS Safety Report 4468025-8 (Version None)
Quarter: 2004Q4

REPORT INFORMATION
  Report Type: 
  Country: None (occurrence: None)
  Receive Date: 20041004
  Receipt Date: 20041004
  Transmission Date: 20050328
  Serious: Yes (Other)
  Sender: FDA-Public Use
  Company Number: None

PATIENT
  Age: 52 Year
  Sex: Male
  Weight: 92.1 kg

DRUGS (8)
  1. LORATADINE [Suspect]
  2. ROFECOXIB [Concomitant]
  3. ATENOLOL [Concomitant]
  4. BUPROPION HCL [Concomitant]
  5. BUPROPION HCL [Concomitant]
  6. LORATADINE [Concomitant]
  7. FLUNISOLIDE [Concomitant]
  8. SIMVASTATIN [Concomitant]

REACTIONS (1)
  - PALPITATIONS [None]
